FAERS Safety Report 25797443 (Version 1)
Quarter: 2025Q3

REPORT INFORMATION
  Report Type: Spontaneous
  Country: US (occurrence: None)
  Receive Date: 20250912
  Receipt Date: 20250912
  Transmission Date: 20251020
  Serious: Yes (Hospitalization)
  Sender: FDA-CTU
  Company Number: None

PATIENT
  Sex: Male

DRUGS (2)
  1. TOBRAMYCIN [Suspect]
     Active Substance: TOBRAMYCIN
     Indication: Bacterial disease carrier
     Dosage: FREQUENCY : TWICE A DAY;?
     Route: 055
  2. DEVICE [Suspect]
     Active Substance: DEVICE

REACTIONS (2)
  - Tracheostomy infection [None]
  - Bacterial infection [None]
